FAERS Safety Report 6266819-X (Version None)
Quarter: 2009Q3

REPORT INFORMATION
  Report Type: 
  Country: None (occurrence: None)
  Receive Date: 20090714
  Receipt Date: 20090529
  Transmission Date: 20100115
  Serious: Yes (Life-Threatening)
  Sender: FDA-Public Use
  Company Number: TR-JNJFOC-20090702077

PATIENT
  Age: 15 Year
  Sex: Female

DRUGS (4)
  1. ITRACONAZOLE [Suspect]
     Indication: ASPERGILLOSIS
     Route: 065
  2. AMPHOTERICIN B [Suspect]
     Route: 042
  3. AMPHOTERICIN B [Suspect]
     Route: 042
  4. AMPHOTERICIN B [Suspect]
     Indication: ASPERGILLOSIS
     Route: 042

REACTIONS (3)
  - ASPERGILLOSIS [None]
  - NEUROLOGICAL SYMPTOM [None]
  - RESPIRATORY DISTRESS [None]
